FAERS Safety Report 11514466 (Version 2)
Quarter: 2015Q4

REPORT INFORMATION
  Report Type: Spontaneous
  Country: US (occurrence: US)
  Receive Date: 20150916
  Receipt Date: 20151207
  Transmission Date: 20160304
  Serious: Yes (Hospitalization, Other)
  Sender: FDA-Public Use
  Company Number: US-BAYER-2015-423880

PATIENT
  Age: 24 Year
  Sex: Female
  Weight: 108.84 kg

DRUGS (3)
  1. DOXYCYCLINE. [Concomitant]
     Active Substance: DOXYCYCLINE
  2. MIRENA [Suspect]
     Active Substance: LEVONORGESTREL
     Indication: CONTRACEPTION
     Dosage: 20 MCG/24HR, CONT
     Route: 015
     Dates: start: 20090330, end: 20120910
  3. VICODIN [Concomitant]
     Active Substance: ACETAMINOPHEN\HYDROCODONE BITARTRATE

REACTIONS (14)
  - Pelvic pain [None]
  - Weight increased [None]
  - Abdominal pain [None]
  - Pelvic inflammatory disease [None]
  - Device use error [None]
  - Depression [None]
  - Anxiety [None]
  - Device dislocation [None]
  - Uterine perforation [None]
  - Psychological trauma [None]
  - Device issue [None]
  - Injury [None]
  - Emotional distress [None]
  - Stress [None]

NARRATIVE: CASE EVENT DATE: 201201
